FAERS Safety Report 7904863-4 (Version None)
Quarter: 2011Q4

REPORT INFORMATION
  Report Type: 
  Country: None (occurrence: None)
  Receive Date: 20111109
  Receipt Date: 20111028
  Transmission Date: 20120403
  Serious: Yes (Hospitalization, Other)
  Sender: FDA-Public Use
  Company Number: PHHY2011DE69887

PATIENT
  Age: 63 Year
  Sex: Male
  Weight: 58 kg

DRUGS (11)
  1. CALCIUM [Concomitant]
  2. AFINITOR [Suspect]
     Dosage: 10 MG, DAILY
     Route: 048
     Dates: end: 20111005
  3. LEGALON [Concomitant]
  4. GELCLAIR [Concomitant]
  5. DIURETICS [Concomitant]
  6. ZOLPIDEM [Concomitant]
     Dosage: 10 MG, UNK
  7. LINDA UREA [Concomitant]
  8. PROTON PUMP INHIBITORS [Concomitant]
  9. ACETYLSALICYLIC ACID SRT [Concomitant]
  10. AFINITOR [Suspect]
     Indication: RENAL CELL CARCINOMA
     Dosage: 5 MG, DAILY
     Route: 048
     Dates: start: 20100712
  11. ACE INHIBITOR NOS [Concomitant]

REACTIONS (11)
  - NEOPLASM PROGRESSION [None]
  - METASTASES TO LUNG [None]
  - ANAEMIA [None]
  - NEOPLASM MALIGNANT [None]
  - TYPE 1 DIABETES MELLITUS [None]
  - GAMMA-GLUTAMYLTRANSFERASE INCREASED [None]
  - ANAEMIA OF MALIGNANT DISEASE [None]
  - OEDEMA PERIPHERAL [None]
  - CHRONIC FATIGUE SYNDROME [None]
  - PRURITUS [None]
  - PLEURAL EFFUSION [None]
